FAERS Safety Report 7832879-5 (Version None)
Quarter: 2011Q4

REPORT INFORMATION
  Report Type: 
  Country: None (occurrence: None)
  Receive Date: 20111024
  Receipt Date: 20111015
  Transmission Date: 20120403
  Serious: Yes (Hospitalization, Other)
  Sender: FDA-Public Use
  Company Number: IN-PAR PHARMACEUTICAL, INC-2011SCPR003295

PATIENT

DRUGS (3)
  1. CARBAMAZEPINE [Concomitant]
     Indication: GRAND MAL CONVULSION
     Dosage: 1000 MG, / DAY
     Route: 065
  2. CLOBAZAM [Suspect]
     Indication: GRAND MAL CONVULSION
     Dosage: 15 MG, / DAY
     Route: 065
  3. LEVETIRACETAM [Suspect]
     Indication: GRAND MAL CONVULSION
     Dosage: 1500 MG, / DAY
     Route: 065

REACTIONS (5)
  - MEMORY IMPAIRMENT [None]
  - APHASIA [None]
  - STATUS EPILEPTICUS [None]
  - EPILEPSY [None]
  - DEPRESSED LEVEL OF CONSCIOUSNESS [None]
